FAERS Safety Report 9299505 (Version 2)
Quarter: 2013Q4

REPORT INFORMATION
  Report Type: Spontaneous
  Country: BE (occurrence: BE)
  Receive Date: 20130521
  Receipt Date: 20131208
  Transmission Date: 20140711
  Serious: Yes (Other)
  Sender: FDA-Public Use
  Company Number: BE-ROCHE-1225908

PATIENT
  Age: 33 Year
  Sex: Female

DRUGS (13)
  1. HERCEPTIN [Suspect]
     Indication: BREAST CANCER METASTATIC
     Route: 065
     Dates: start: 20100720, end: 201010
  2. HERCEPTIN [Suspect]
     Route: 065
     Dates: start: 201010, end: 201103
  3. HERCEPTIN [Suspect]
     Route: 065
     Dates: start: 201103, end: 201202
  4. HERCEPTIN [Suspect]
     Route: 065
     Dates: start: 201202, end: 201211
  5. HERCEPTIN [Suspect]
     Route: 065
     Dates: start: 201211, end: 20130415
  6. XELODA [Suspect]
     Indication: BREAST CANCER METASTATIC
     Route: 065
     Dates: start: 20121126, end: 20121127
  7. LAPATINIB [Suspect]
     Indication: BREAST CANCER METASTATIC
     Route: 065
     Dates: start: 201002, end: 201007
  8. PACLITAXEL [Suspect]
     Indication: BREAST CANCER METASTATIC
     Route: 065
     Dates: start: 201002, end: 201007
  9. VINORELBINE [Suspect]
     Indication: BREAST CANCER METASTATIC
     Route: 065
     Dates: start: 201010, end: 201103
  10. LETROZOLE [Suspect]
     Indication: BREAST CANCER METASTATIC
     Route: 065
     Dates: start: 201103, end: 201202
  11. GOSERELIN [Suspect]
     Indication: BREAST CANCER METASTATIC
     Dosage: REPORTED AS ZOLADEX
     Route: 065
     Dates: start: 201103, end: 201202
  12. NAVELBINE [Suspect]
     Indication: BREAST CANCER METASTATIC
     Route: 065
     Dates: start: 201202, end: 201211
  13. CAELYX [Suspect]
     Indication: BREAST CANCER METASTATIC
     Dosage: CUMULATIVE DOSE: 795 MG
     Route: 065
     Dates: start: 201211, end: 20130415

REACTIONS (2)
  - Arteriospasm coronary [Recovered/Resolved]
  - Metastases to lung [Not Recovered/Not Resolved]
